FAERS Safety Report 13720187 (Version 1)
Quarter: 2017Q3

REPORT INFORMATION
  Report Type: Other
  Country: DE (occurrence: DE)
  Receive Date: 20170706
  Receipt Date: 20170706
  Transmission Date: 20171127
  Serious: Yes (Hospitalization, Other)
  Sender: FDA-Public Use
  Company Number: DE-LUPIN PHARMACEUTICALS INC.-E2B_00006330

PATIENT
  Age: 81 Year
  Sex: Male
  Weight: 81 kg

DRUGS (8)
  1. ENALAPRIL [Concomitant]
     Active Substance: ENALAPRIL
     Indication: HYPERTENSION
     Dosage: 10 MG,QD,
     Route: 048
     Dates: start: 201301
  2. SIMVASTATIN. [Suspect]
     Active Substance: SIMVASTATIN
     Dosage: 80 MG,UNK,UNKNOWN
     Route: 048
     Dates: start: 201503
  3. NOVAMINSULFON [Concomitant]
     Active Substance: METAMIZOLE
     Indication: CAROTID ARTERY STENOSIS
     Dosage: 500 MG,QID,
     Route: 048
     Dates: start: 2015
  4. SIMVASTATIN. [Suspect]
     Active Substance: SIMVASTATIN
     Indication: CAROTID ARTERY STENOSIS
     Dosage: 40 MG,UNK,UNKNOWN
     Route: 048
     Dates: start: 201301, end: 201502
  5. ASPIRIN. [Concomitant]
     Active Substance: ASPIRIN
     Indication: CAROTID ARTERY STENOSIS
     Dosage: 100 MG,QD,
     Route: 048
     Dates: start: 200503
  6. TOREM [Concomitant]
     Active Substance: TORSEMIDE
     Indication: HYPERTENSION
     Dosage: 5 MG,QD,
     Route: 048
     Dates: start: 201301
  7. ALLOPURINOL. [Concomitant]
     Active Substance: ALLOPURINOL
     Indication: HYPERURICAEMIA
     Dosage: 100 MG,QD,
     Route: 048
     Dates: start: 201503
  8. BISOPROLOL [Concomitant]
     Active Substance: BISOPROLOL
     Indication: TACHYCARDIA
     Dosage: 2.5 MG,BID,
     Route: 048
     Dates: start: 201301

REACTIONS (2)
  - Rhabdomyolysis [Recovering/Resolving]
  - Renal failure [Recovering/Resolving]

NARRATIVE: CASE EVENT DATE: 20160818
